FAERS Safety Report 9654336 (Version 2)
Quarter: 2014Q1

REPORT INFORMATION
  Report Type: Spontaneous
  Country: US (occurrence: US)
  Receive Date: 20131029
  Receipt Date: 20140124
  Transmission Date: 20141002
  Serious: Yes (Hospitalization)
  Sender: FDA-Public Use
  Company Number: US-B.I. PHARMACEUTICALS,INC./RIDGEFIELD-2013-BI-34668BP

PATIENT
  Age: 75 Year
  Sex: Female
  Weight: 49.9 kg

DRUGS (3)
  1. PRADAXA [Suspect]
     Dates: start: 20110907, end: 20120927
  2. ADVIL PM [Suspect]
  3. ASPIRIN [Suspect]

REACTIONS (4)
  - Gastrointestinal haemorrhage [Unknown]
  - Renal failure acute [Unknown]
  - Acute respiratory distress syndrome [Unknown]
  - Pneumonia [Unknown]
